FAERS Safety Report 12137281 (Version 1)
Quarter: 2016Q1

REPORT INFORMATION
  Report Type: Spontaneous
  Country: HR (occurrence: HR)
  Receive Date: 20160302
  Receipt Date: 20160302
  Transmission Date: 20160526
  Serious: Yes (Other)
  Sender: FDA-Public Use
  Company Number: HR-PFIZER INC-2016113797

PATIENT
  Age: 66 Year
  Sex: Male

DRUGS (3)
  1. SUNITINIB MALATE. [Suspect]
     Active Substance: SUNITINIB MALATE
     Dosage: 37.5 MG
  2. SUNITINIB MALATE. [Suspect]
     Active Substance: SUNITINIB MALATE
     Dosage: 25 MG
     Dates: end: 201211
  3. SUNITINIB MALATE. [Suspect]
     Active Substance: SUNITINIB MALATE
     Indication: METASTATIC RENAL CELL CARCINOMA
     Dosage: 50 MG, CYCLIC (4 WEEKS ON/2 WEEKS OFF)

REACTIONS (7)
  - Petechiae [Unknown]
  - Hypertensive crisis [Unknown]
  - Pyrexia [Unknown]
  - Diarrhoea [Unknown]
  - Anaemia [Unknown]
  - Fatigue [Unknown]
  - Stomatitis [Unknown]
